FAERS Safety Report 24365619 (Version 4)
Quarter: 2024Q4

REPORT INFORMATION
  Report Type: Report from Study
  Country: US (occurrence: US)
  Receive Date: 20240926
  Receipt Date: 20241219
  Transmission Date: 20250115
  Serious: Yes (Hospitalization, Other)
  Sender: ABBVIE
  Company Number: US-ABBVIE-5936025

PATIENT
  Age: 78 Year
  Sex: Male
  Weight: 68 kg

DRUGS (6)
  1. CREON [Suspect]
     Active Substance: PANCRELIPASE AMYLASE\PANCRELIPASE LIPASE\PANCRELIPASE PROTEASE
     Indication: Digestive enzyme abnormal
     Dosage: TIME INTERVAL: 0.33333333 DAYS: FREQUENCY TEXT ONE CAPSULE PER MEAL,?FORM STRENGTH 24000 UNITS
     Route: 048
     Dates: start: 20150102
  2. ELIQUIS [Concomitant]
     Active Substance: APIXABAN
     Indication: Thrombosis
  3. METOPROLOL [Concomitant]
     Active Substance: METOPROLOL
     Indication: Product used for unknown indication
  4. THEOPHYLLINE [Concomitant]
     Active Substance: THEOPHYLLINE
     Indication: Chronic obstructive pulmonary disease
  5. IRON [Concomitant]
     Active Substance: IRON
     Indication: Mineral supplementation
  6. PREDNISONE [Concomitant]
     Active Substance: PREDNISONE
     Indication: Chronic obstructive pulmonary disease

REACTIONS (5)
  - Colon cancer stage II [Recovering/Resolving]
  - Haemorrhage [Recovered/Resolved]
  - Haemoglobin decreased [Recovered/Resolved]
  - Oxygen saturation decreased [Recovered/Resolved]
  - Serum ferritin decreased [Unknown]

NARRATIVE: CASE EVENT DATE: 20240901
